FAERS Safety Report 14469441 (Version 1)
Quarter: 2018Q1

REPORT INFORMATION
  Report Type: Other
  Country: US (occurrence: US)
  Receive Date: 20180131
  Receipt Date: 20180131
  Transmission Date: 20180509
  Serious: No
  Sender: FDA-Public Use
  Company Number: US-ACORDA-ACO_140937_2017

PATIENT
  Age: 65 Year
  Sex: Female
  Weight: 77.1 kg

DRUGS (6)
  1. AMPYRA [Suspect]
     Active Substance: DALFAMPRIDINE
     Indication: PRODUCT USED FOR UNKNOWN INDICATION
     Dosage: 10 MG, BID
     Route: 048
     Dates: start: 201610
  2. BENAZEPRIL [Concomitant]
     Active Substance: BENAZEPRIL HYDROCHLORIDE
     Indication: HYPERTENSION
     Dosage: 40 MG, QD
     Route: 065
  3. NORVASC [Concomitant]
     Active Substance: AMLODIPINE BESYLATE
     Indication: HYPERTENSION
     Dosage: 10 MG, QD
     Route: 065
  4. LASIX [Concomitant]
     Active Substance: FUROSEMIDE
     Indication: HYPERTENSION
     Dosage: 20 MG, QD
     Route: 065
  5. GILENYA [Suspect]
     Active Substance: FINGOLIMOD HYDROCHLORIDE
     Indication: MULTIPLE SCLEROSIS
     Dosage: 0.5 MG, QD
     Route: 048
     Dates: start: 201402
  6. AMLODIPINE [Concomitant]
     Active Substance: AMLODIPINE BESYLATE
     Indication: HYPERTENSION
     Dosage: UNK
     Route: 065

REACTIONS (16)
  - Condition aggravated [Unknown]
  - Chest injury [Unknown]
  - Vitamin D deficiency [Unknown]
  - Pain [Unknown]
  - Diarrhoea [Recovered/Resolved]
  - Hyperglycaemia [Unknown]
  - Tremor [Unknown]
  - Sinus congestion [Unknown]
  - Musculoskeletal chest pain [Unknown]
  - Urinary tract infection [Unknown]
  - Dysuria [Unknown]
  - Anal incontinence [Unknown]
  - Dyspepsia [Unknown]
  - Gait disturbance [Unknown]
  - Vulvovaginal discomfort [Unknown]
  - Fall [Unknown]

NARRATIVE: CASE EVENT DATE: 20160622
